FAERS Safety Report 9130164 (Version 1)
Quarter: 2013Q1

REPORT INFORMATION
  Report Type: Spontaneous
  Country: US (occurrence: US)
  Receive Date: 20130228
  Receipt Date: 20130228
  Transmission Date: 20140127
  Serious: No
  Sender: FDA-Public Use
  Company Number: US-ABBOTT-13P-163-1033426-00

PATIENT
  Age: 67 Year
  Sex: Male
  Weight: 83.99 kg

DRUGS (12)
  1. ANDROGEL [Suspect]
     Indication: BLOOD TESTOSTERONE DECREASED
     Dosage: 2 PUMPS DAILY
  2. ANDROGEL [Suspect]
     Dosage: 1 PUMP DAILY
  3. ANDROGEL [Suspect]
  4. REVLIMID [Concomitant]
     Indication: CHEMOTHERAPY
  5. DEXAMETHAZONE [Concomitant]
     Indication: PRODUCT USED FOR UNKNOWN INDICATION
  6. FLOMAX [Concomitant]
     Indication: PRODUCT USED FOR UNKNOWN INDICATION
  7. PERCOCET [Concomitant]
     Indication: PRODUCT USED FOR UNKNOWN INDICATION
  8. NORCO [Concomitant]
     Indication: PRODUCT USED FOR UNKNOWN INDICATION
  9. RESTORIL [Concomitant]
     Indication: INSOMNIA
     Dosage: AS NEEDED, ROTATED EVERY FEW DAYS
  10. LUNESTA [Concomitant]
     Indication: INSOMNIA
     Dosage: AS NEEDED, ROTATED EVERY FEW DAYS
  11. XANAX [Concomitant]
     Indication: INSOMNIA
     Dosage: AS NEEDED, ROTATED EVERY FEW DAYS
  12. AMBIEN CR [Concomitant]
     Indication: INSOMNIA
     Dosage: AS NEEDED, ROTATED EVERY FEW DAYS

REACTIONS (3)
  - Blood testosterone decreased [Not Recovered/Not Resolved]
  - Drug ineffective [Not Recovered/Not Resolved]
  - Incorrect dose administered [Recovered/Resolved]
